FAERS Safety Report 5190748-6 (Version None)
Quarter: 2006Q4

REPORT INFORMATION
  Report Type: 
  Country: None (occurrence: None)
  Receive Date: 20061222
  Receipt Date: 20060816
  Transmission Date: 20070319
  Serious: No
  Sender: FDA-Public Use
  Company Number: US-AVENTIS-200616977US

PATIENT
  Sex: Female
  Weight: 136.4 kg

DRUGS (20)
  1. LANTUS [Suspect]
     Indication: DIABETES MELLITUS
     Dates: start: 20051101
  2. LANTUS [Suspect]
     Dates: start: 20051101
  3. OPTICLIK (INSULIN INJECTION PEN) [Suspect]
  4. OPTICLIK (INSULIN INJECTION PEN) [Suspect]
  5. PROCRIT                            /00909301/ [Concomitant]
     Dosage: DOSE: UNK
  6. INSULIN [Concomitant]
     Dosage: DOSE: UNK
  7. HUMULIN 70/30 [Concomitant]
  8. IMDUR [Concomitant]
  9. NEPHROCAPS                         /01041101/ [Concomitant]
  10. LASIX [Concomitant]
  11. AMARYL [Concomitant]
  12. DIOVANE [Concomitant]
  13. UNKNOWN DRUG [Concomitant]
  14. METOPROLOL SUCCINATE [Concomitant]
     Dosage: DOSE: UNK
  15. ALLOPURINOL [Concomitant]
     Dosage: DOSE: UNK
  16. NORVASC [Concomitant]
     Dosage: DOSE: UNK
  17. CATAPRES                           /00171101/ [Concomitant]
     Dosage: DOSE: UNK
  18. ZOCOR [Concomitant]
     Dosage: DOSE: UNK
  19. ZANTAC [Concomitant]
     Dosage: DOSE: UNK
  20. ZESTRIL [Concomitant]
     Dosage: DOSE: UNK

REACTIONS (4)
  - BLOOD GLUCOSE DECREASED [None]
  - BLOOD GLUCOSE INCREASED [None]
  - FLUID RETENTION [None]
  - PHARMACEUTICAL PRODUCT COMPLAINT [None]
